FAERS Safety Report 5905472-9 (Version None)
Quarter: 2008Q4

REPORT INFORMATION
  Report Type: 
  Country: None (occurrence: None)
  Receive Date: 20081002
  Receipt Date: 20080924
  Transmission Date: 20090506
  Serious: Yes (Death)
  Sender: FDA-Public Use
  Company Number: SE-BAYER-200827076GPV

PATIENT
  Age: 90 Year
  Sex: Male

DRUGS (9)
  1. CIPROFLOXACIN HCL [Suspect]
     Indication: INFECTION
     Route: 048
     Dates: end: 20080724
  2. CIPROFLOXACIN HCL [Suspect]
     Route: 048
     Dates: start: 20080505
  3. RIFAMPICIN [Suspect]
     Indication: INFECTION
     Route: 048
     Dates: start: 20080505
  4. RIFAMPICIN [Suspect]
     Route: 048
     Dates: end: 20080724
  5. OMEPRAZOLE [Concomitant]
     Indication: DRUG USE FOR UNKNOWN INDICATION
     Route: 065
     Dates: end: 20080802
  6. BETOLVEX [Concomitant]
     Indication: DRUG USE FOR UNKNOWN INDICATION
     Route: 065
     Dates: end: 20080802
  7. DEXOFEN [Concomitant]
     Indication: DRUG USE FOR UNKNOWN INDICATION
     Route: 065
     Dates: end: 20080802
  8. HERACILLIN [Concomitant]
     Indication: DRUG USE FOR UNKNOWN INDICATION
     Route: 065
     Dates: end: 20080724
  9. NONE-INVASIVE VENTILATIONS SUPPORT [Concomitant]
     Indication: DRUG USE FOR UNKNOWN INDICATION
     Route: 065
     Dates: end: 20080802

REACTIONS (15)
  - ANOREXIA [None]
  - ASTHENIA [None]
  - CACHEXIA [None]
  - DRY MOUTH [None]
  - DYSPHAGIA [None]
  - HYPERCAPNIA [None]
  - HYPERTONIA [None]
  - HYPOALBUMINAEMIA [None]
  - HYPOTHERMIA [None]
  - OEDEMA PERIPHERAL [None]
  - RENAL FAILURE [None]
  - RESPIRATION ABNORMAL [None]
  - SEPSIS [None]
  - TRANSAMINASES INCREASED [None]
  - WEIGHT DECREASED [None]
